FAERS Safety Report 6178881-3 (Version None)
Quarter: 2009Q2

REPORT INFORMATION
  Report Type: 
  Country: None (occurrence: None)
  Receive Date: 20090505
  Receipt Date: 20090423
  Transmission Date: 20091009
  Serious: Yes (Hospitalization)
  Sender: FDA-Public Use
  Company Number: US-PFIZER INC-2009202021

PATIENT
  Sex: Female
  Weight: 54 kg

DRUGS (13)
  1. SUNITINIB MALATE [Suspect]
     Indication: BREAST CANCER METASTATIC
     Dosage: 12.5 MG, 3X/DAY
     Route: 048
     Dates: start: 20090128, end: 20090406
  2. ACETYLSALICYLIC ACID [Concomitant]
     Dosage: UNK
     Route: 048
  3. HYDROCHLOROTHIAZIDE [Concomitant]
     Dosage: UNK
     Route: 048
  4. LISINOPRIL [Concomitant]
     Dosage: UNK
     Route: 048
  5. METOPROLOL [Concomitant]
     Dosage: UNK
     Route: 048
  6. LOVAZA [Concomitant]
     Dosage: UNK
     Route: 048
  7. CALCIUM [Concomitant]
     Dosage: UNK
     Route: 048
  8. VITAMIN B6 [Concomitant]
     Dosage: UNK
     Route: 048
  9. POTASSIUM CHLORIDE [Concomitant]
     Dosage: UNK
     Route: 048
  10. ZOLOFT [Concomitant]
     Dosage: UNK
     Route: 048
  11. OXYCODONE [Concomitant]
     Dosage: UNK
     Route: 048
  12. ZOFRAN [Concomitant]
     Dosage: UNK
     Route: 048
     Dates: start: 20090414
  13. TEMAZEPAM [Concomitant]
     Dosage: UNK
     Route: 048
     Dates: start: 20080604

REACTIONS (7)
  - COUGH [None]
  - DEEP VEIN THROMBOSIS [None]
  - DEHYDRATION [None]
  - DIARRHOEA [None]
  - DYSPNOEA [None]
  - HYPOKALAEMIA [None]
  - PLEURAL EFFUSION [None]
